FAERS Safety Report 8214124-4 (Version None)
Quarter: 2012Q1

REPORT INFORMATION
  Report Type: 
  Country: None (occurrence: None)
  Receive Date: 20120314
  Receipt Date: 20120314
  Transmission Date: 20120608
  Serious: Yes (Hospitalization)
  Sender: FDA-Public Use
  Company Number: None

PATIENT
  Age: 85 Year
  Sex: Male
  Weight: 60 kg

DRUGS (15)
  1. JEVITY [Concomitant]
  2. COREG [Concomitant]
  3. KEPPRA [Concomitant]
  4. SENOKOT [Concomitant]
  5. M.V.I. [Concomitant]
  6. ZOLOFT [Concomitant]
  7. LOVENOX [Suspect]
     Dosage: 70MG Q12HR SQ  RECENT
     Route: 058
  8. SYNTHROID [Concomitant]
  9. PRILOSEC [Concomitant]
  10. MMW [Concomitant]
  11. COUMADIN [Suspect]
     Dosage: 3MG DAILY PO RECENT
     Route: 048
  12. ASPIRIN [Suspect]
     Dosage: 81MG DAILY PO CHRONIC
     Route: 048
  13. MOM [Concomitant]
  14. BISACODYL [Concomitant]
  15. VITAMIN B-12 [Concomitant]

REACTIONS (2)
  - SKIN HAEMORRHAGE [None]
  - IMPLANT SITE HAEMORRHAGE [None]
